FAERS Safety Report 16961376 (Version 2)
Quarter: 2019Q4

REPORT INFORMATION
  Report Type: Report from Study
  Country: GB (occurrence: GB)
  Receive Date: 20191025
  Receipt Date: 20191227
  Transmission Date: 20200122
  Serious: Yes (Hospitalization)
  Sender: FDA-Public Use
  Company Number: GB-EMD SERONO-9124014

PATIENT
  Sex: Female

DRUGS (4)
  1. MAVENCLAD [Suspect]
     Active Substance: CLADRIBINE
     Indication: MULTIPLE SCLEROSIS
     Dosage: FIRST YEAR THERAPY: TWO TABLETS (EACH OF 10MG) ON DAY ONE AND ONE TABLET ON DAYS TWO TO FIVE.
     Route: 048
     Dates: start: 20180510
  2. MAVENCLAD [Suspect]
     Active Substance: CLADRIBINE
     Dosage: SECOND YEAR FIRST WEEK THERAPY: TWO TABLETS (EACH OF 10MG) ON DAY ONE AND ONE TABLET ON DAYS TWO TO
     Route: 048
     Dates: start: 20190701
  3. MAVENCLAD [Suspect]
     Active Substance: CLADRIBINE
     Dosage: SECOND YEAR SECOND WEEK THERAPY: TWO TABLETS (EACH OF 10 MG) ON DAY ONE AND ONE TABLET ON DAYS TWO T
     Route: 048
  4. KEPPRA [Suspect]
     Active Substance: LEVETIRACETAM
     Indication: SEIZURE

REACTIONS (7)
  - Lower respiratory tract infection [Unknown]
  - Poor quality sleep [Unknown]
  - Nasopharyngitis [Unknown]
  - Ear pain [Unknown]
  - Pain in jaw [Unknown]
  - Seizure [Unknown]
  - Mobility decreased [Unknown]
